FAERS Safety Report 23533013 (Version 1)
Quarter: 2024Q1

REPORT INFORMATION
  Report Type: Spontaneous
  Country: US (occurrence: None)
  Receive Date: 20240216
  Receipt Date: 20240216
  Transmission Date: 20240410
  Serious: Yes (Hospitalization)
  Sender: FDA-Public Use
  Company Number: None

PATIENT
  Sex: Female

DRUGS (2)
  1. MYCOPHENOLATE MOFETIL [Suspect]
     Active Substance: MYCOPHENOLATE MOFETIL
     Indication: Systemic lupus erythematosus
     Dosage: FREQUENCY : TWICE A DAY;?
     Route: 048
     Dates: start: 202202
  2. TYVASO [Suspect]
     Active Substance: TREPROSTINIL

REACTIONS (3)
  - Pneumonia [None]
  - Hypotension [None]
  - Therapy interrupted [None]
